FAERS Safety Report 7769773-4 (Version None)
Quarter: 2011Q3

REPORT INFORMATION
  Report Type: 
  Country: None (occurrence: None)
  Receive Date: 20110922
  Receipt Date: 20100826
  Transmission Date: 20111222
  Serious: No
  Sender: FDA-Public Use
  Company Number: US-ASTRAZENECA-2007UW21497

PATIENT
  Age: 58 Year
  Sex: Female
  Weight: 86.2 kg

DRUGS (23)
  1. LEXAPRO [Concomitant]
     Dosage: 20MG-30MG
     Route: 048
  2. PREMARIN [Concomitant]
     Dosage: 0.3MG-2.5MG
     Route: 048
  3. FOLIC ACID [Concomitant]
     Route: 048
  4. SEROQUEL [Suspect]
     Dosage: 25- 200 MG
     Route: 048
     Dates: start: 20050817
  5. CAMPRAL [Concomitant]
     Dosage: 333MG-1998MG
     Route: 048
  6. CRESTOR [Concomitant]
     Route: 048
  7. FLAGYL [Concomitant]
     Indication: VAGINITIS BACTERIAL
     Dosage: 500MG-2000MG
     Route: 048
  8. LOTENSIN [Concomitant]
     Route: 048
  9. LAMICTAL [Concomitant]
     Dosage: 50MG-200MG DAILY
     Route: 048
  10. THIAMINE HCL [Concomitant]
     Route: 048
  11. PRINIVIL [Concomitant]
     Indication: ESSENTIAL HYPERTENSION
     Route: 048
  12. SEROQUEL [Suspect]
     Indication: POST-TRAUMATIC STRESS DISORDER
     Dosage: 75 MG TO 200 MG
     Route: 048
     Dates: start: 20050301
  13. SEROQUEL [Suspect]
     Indication: ANXIETY
     Dosage: 75 MG TO 200 MG
     Route: 048
     Dates: start: 20050301
  14. HALDOL [Concomitant]
  15. THORAZINE [Concomitant]
  16. SEROQUEL [Suspect]
     Indication: DEPRESSION
     Dosage: 75 MG TO 200 MG
     Route: 048
     Dates: start: 20050301
  17. SEROQUEL [Suspect]
     Indication: SLEEP DISORDER
     Dosage: 75 MG TO 200 MG
     Route: 048
     Dates: start: 20050301
  18. SEROQUEL [Suspect]
     Dosage: 25- 200 MG
     Route: 048
     Dates: start: 20050817
  19. SEROQUEL [Suspect]
     Dosage: 25- 200 MG
     Route: 048
     Dates: start: 20050817
  20. LIBRIUM [Concomitant]
     Dosage: 10MG-30MG
     Route: 048
  21. SEROQUEL [Suspect]
     Indication: BIPOLAR DISORDER
     Dosage: 75 MG TO 200 MG
     Route: 048
     Dates: start: 20050301
  22. SEROQUEL [Suspect]
     Dosage: 25- 200 MG
     Route: 048
     Dates: start: 20050817
  23. SEROQUEL [Suspect]
     Dosage: 25- 200 MG
     Route: 048
     Dates: start: 20050817

REACTIONS (15)
  - HYPERLIPIDAEMIA [None]
  - DIZZINESS [None]
  - POST-TRAUMATIC STRESS DISORDER [None]
  - BLOOD TRIGLYCERIDES INCREASED [None]
  - CARPAL TUNNEL SYNDROME [None]
  - WRIST FRACTURE [None]
  - BIPOLAR DISORDER [None]
  - FOREARM FRACTURE [None]
  - BREAST MASS [None]
  - DIABETIC COMPLICATION [None]
  - ARTHRALGIA [None]
  - SYNOVITIS [None]
  - JOINT EFFUSION [None]
  - TYPE 2 DIABETES MELLITUS [None]
  - DIABETES MELLITUS [None]
